FAERS Safety Report 8623256-8 (Version None)
Quarter: 2012Q3

REPORT INFORMATION
  Report Type: 
  Country: None (occurrence: None)
  Receive Date: 20120827
  Receipt Date: 20120814
  Transmission Date: 20120928
  Serious: No
  Sender: FDA-Public Use
  Company Number: US-BAYER-2012-084650

PATIENT

DRUGS (1)
  1. GADAVIST [Suspect]

REACTIONS (2)
  - VOMITING [None]
  - MALAISE [None]
